FAERS Safety Report 17356133 (Version 2)
Quarter: 2020Q1

REPORT INFORMATION
  Report Type: Spontaneous
  Country: GB (occurrence: GB)
  Receive Date: 20200131
  Receipt Date: 20200213
  Transmission Date: 20200409
  Serious: Yes (Other)
  Sender: FDA-Public Use
  Company Number: NVSC2020GB022866

PATIENT
  Age: 55 Year
  Sex: Male

DRUGS (18)
  1. LEFLUNOMIDE. [Suspect]
     Active Substance: LEFLUNOMIDE
     Indication: CYTOMEGALOVIRUS INFECTION
     Dosage: UNK, 15 MONTHS
     Route: 065
  2. GANCICLOVIR. [Suspect]
     Active Substance: GANCICLOVIR
     Indication: CYTOMEGALOVIRUS CHORIORETINITIS
     Dosage: 2 MG, QW (4 WEEKS)
     Route: 031
  3. SIROLIMUS. [Suspect]
     Active Substance: SIROLIMUS
     Indication: ANTIVIRAL TREATMENT
     Dosage: 1.5 MG, QD
     Route: 065
  4. PREDNISOLONE. [Suspect]
     Active Substance: PREDNISOLONE
     Dosage: 15 MG, QD (2 MONTHS)
     Route: 065
  5. METHYLPREDNISOLONE. [Concomitant]
     Active Substance: METHYLPREDNISOLONE
     Indication: PRODUCT USED FOR UNKNOWN INDICATION
     Dosage: UNK
     Route: 065
  6. TACROLIMUS. [Suspect]
     Active Substance: TACROLIMUS
     Indication: ANTIVIRAL TREATMENT
     Dosage: 4 MG, QD
     Route: 048
  7. HUMAN IMMUNOGLOBULIN (IMMUNOGLOBULIN HUMAN NORMAL) [Suspect]
     Active Substance: HUMAN IMMUNOGLOBULIN G
     Indication: CYTOMEGALOVIRUS CHORIORETINITIS
     Dosage: 2 MG/KG, QW
     Route: 065
  8. VALGANCICLOVIR. [Suspect]
     Active Substance: VALGANCICLOVIR
     Indication: CYTOMEGALOVIRUS INFECTION
     Dosage: 450 MG, QD
     Route: 048
  9. AZATHIOPRINE. [Suspect]
     Active Substance: AZATHIOPRINE
     Indication: IMMUNOSUPPRESSION
     Dosage: UNK
     Route: 065
  10. CYCLOSPORINE. [Suspect]
     Active Substance: CYCLOSPORINE
     Indication: IMMUNOSUPPRESSION
     Route: 065
  11. VALGANCICLOVIR. [Suspect]
     Active Substance: VALGANCICLOVIR
     Indication: CYTOMEGALOVIRUS CHORIORETINITIS
     Dosage: 25 MG/KG
     Route: 042
  12. GANCICLOVIR. [Suspect]
     Active Substance: GANCICLOVIR
     Indication: CYTOMEGALOVIRUS VIRAEMIA
     Dosage: 2.5 MG/KG, QD (4 WEEKS)
     Route: 042
  13. FOSCARNET [Suspect]
     Active Substance: FOSCARNET
     Indication: CYTOMEGALOVIRUS INFECTION
     Dosage: UNK
     Route: 042
  14. PREDNISOLONE. [Suspect]
     Active Substance: PREDNISOLONE
     Indication: IMMUNOSUPPRESSION
     Dosage: 8 MG, QD
     Route: 065
  15. FOSCARNET [Suspect]
     Active Substance: FOSCARNET
     Dosage: 2.4 MG
     Route: 031
  16. ANTITHYMOCYTE IMMUNOGLOBULIN (RABBIT) [Suspect]
     Active Substance: LAPINE T-LYMPHOCYTE IMMUNE GLOBULIN
     Indication: IMMUNOSUPPRESSION
     Dosage: 1.5 MG/KG
     Route: 065
  17. HUMAN IMMUNOGLOBULIN (IMMUNOGLOBULIN HUMAN NORMAL) [Suspect]
     Active Substance: HUMAN IMMUNOGLOBULIN G
     Indication: CYTOMEGALOVIRUS INFECTION
  18. PREDNISOLONE. [Suspect]
     Active Substance: PREDNISOLONE
     Indication: ANTIVIRAL TREATMENT
     Dosage: 5 MG, QD
     Route: 065

REACTIONS (8)
  - Product use issue [Recovered/Resolved]
  - Cytomegalovirus infection [Recovered/Resolved]
  - Pneumonia cytomegaloviral [Recovered/Resolved]
  - Nephropathy toxic [Recovered/Resolved]
  - Renal impairment [Recovered/Resolved]
  - Drug resistance [Recovered/Resolved]
  - Cytomegalovirus chorioretinitis [Recovered/Resolved]
  - Off label use [Unknown]
